FAERS Safety Report 6564968-X (Version None)
Quarter: 2010Q1

REPORT INFORMATION
  Report Type: 
  Country: None (occurrence: None)
  Receive Date: 20100201
  Receipt Date: 20100119
  Transmission Date: 20100710
  Serious: Yes (Hospitalization)
  Sender: FDA-Public Use
  Company Number: NL-MEDIMMUNE-MEDI-0010313

PATIENT
  Sex: Female

DRUGS (2)
  1. SYNAGIS [Suspect]
     Route: 030
     Dates: start: 20090917, end: 20091214
  2. SYNAGIS [Suspect]
     Route: 030
     Dates: start: 20100114, end: 20100114

REACTIONS (1)
  - VIRAL INFECTION [None]
